FAERS Safety Report 13658212 (Version 1)
Quarter: 2017Q2

REPORT INFORMATION
  Report Type: Report from Study
  Country: None (occurrence: BR)
  Receive Date: 20170616
  Receipt Date: 20170616
  Transmission Date: 20170830
  Serious: Yes (Hospitalization, Other)
  Sender: FDA-Public Use
  Company Number: BR-ABBVIE-17K-020-2003208-00

PATIENT
  Age: 62 Year
  Sex: Female
  Weight: 79 kg

DRUGS (3)
  1. ACERTIL [Concomitant]
     Active Substance: PERINDOPRIL ARGININE
     Indication: BLOOD PRESSURE ABNORMAL
     Route: 048
     Dates: start: 201706
  2. HUMIRA [Suspect]
     Active Substance: ADALIMUMAB
     Indication: RHEUMATOID ARTHRITIS
     Route: 058
     Dates: start: 20170509
  3. ARAVA [Concomitant]
     Active Substance: LEFLUNOMIDE
     Indication: RHEUMATOID ARTHRITIS
     Route: 048
     Dates: start: 20170510

REACTIONS (7)
  - Syncope [Recovered/Resolved]
  - Blood pressure decreased [Recovered/Resolved]
  - Hyperhidrosis [Recovered/Resolved]
  - Blood potassium decreased [Recovered/Resolved]
  - Blood creatinine increased [Recovered/Resolved]
  - Loss of consciousness [Recovered/Resolved]
  - Urinary tract infection [Recovered/Resolved]

NARRATIVE: CASE EVENT DATE: 201705
